FAERS Safety Report 7744267-0 (Version None)
Quarter: 2011Q3

REPORT INFORMATION
  Report Type: 
  Country: None (occurrence: None)
  Receive Date: 20110912
  Receipt Date: 20110901
  Transmission Date: 20111222
  Serious: Yes (Death)
  Sender: FDA-Public Use
  Company Number: US-GENZYME-CLOF-1001740

PATIENT
  Sex: Female
  Weight: 95.9 kg

DRUGS (8)
  1. LEVAQUIN [Concomitant]
     Indication: INFECTION PROPHYLAXIS
     Dosage: UNK, QD
     Route: 065
  2. HYDROCODONE [Concomitant]
     Indication: PAIN
     Dosage: UNK, Q8HR, PRN
     Route: 065
  3. VALTREX [Concomitant]
     Indication: INFECTION PROPHYLAXIS
     Dosage: UNK, BID
     Route: 065
  4. CYTARABINE [Suspect]
     Indication: ACUTE MYELOID LEUKAEMIA
     Dosage: 1.6 G, QDX3
     Route: 065
     Dates: start: 20101005, end: 20101007
  5. DIFLUCAN [Concomitant]
     Indication: INFECTION PROPHYLAXIS
     Dosage: UNK, QD
     Route: 065
  6. AMBIEN [Concomitant]
     Indication: INSOMNIA
     Dosage: AT BEDTIME
     Route: 065
  7. IDARUBICIN HCL [Suspect]
     Indication: ACUTE MYELOID LEUKAEMIA
     Dosage: 12.8 MG, QDX3
     Route: 065
     Dates: start: 20101005, end: 20101007
  8. CLOLAR [Suspect]
     Indication: ACUTE MYELOID LEUKAEMIA
     Dosage: 48 MG, QDX5
     Route: 065
     Dates: start: 20101005, end: 20101009

REACTIONS (2)
  - SEPTIC SHOCK [None]
  - MULTI-ORGAN FAILURE [None]
